FAERS Safety Report 24150857 (Version 1)
Quarter: 2024Q3

REPORT INFORMATION
  Report Type: Spontaneous
  Country: US (occurrence: None)
  Receive Date: 20240729
  Receipt Date: 20240729
  Transmission Date: 20241017
  Serious: Yes (Hospitalization)
  Sender: Public
  Company Number: None

PATIENT
  Age: 48 Year
  Sex: Male
  Weight: 85.7 kg

DRUGS (1)
  1. ALBUMIN HUMAN [Suspect]
     Active Substance: ALBUMIN HUMAN
     Indication: Fluid replacement
     Dosage: 75 G GRAM(S) ONCE INTRAVENOUS?
     Route: 042

REACTIONS (2)
  - Anaphylactic reaction [None]
  - Infusion related reaction [None]

NARRATIVE: CASE EVENT DATE: 20240725
